FAERS Safety Report 8530760-X (Version None)
Quarter: 2012Q3

REPORT INFORMATION
  Report Type: 
  Country: None (occurrence: None)
  Receive Date: 20120723
  Receipt Date: 20120712
  Transmission Date: 20120928
  Serious: Yes (Hospitalization)
  Sender: FDA-Public Use
  Company Number: NL-TEVA-348569ISR

PATIENT
  Sex: Male
  Weight: 78 kg

DRUGS (2)
  1. ACENOCOUMAROL TABLET 1MG [Concomitant]
     Dates: start: 20070801
  2. SOTALOL HYDROCHLORIDE [Suspect]
     Dosage: 40 MILLIGRAM;
     Dates: start: 20070801, end: 20110101

REACTIONS (1)
  - ARTERIOSPASM CORONARY [None]
